FAERS Safety Report 6566696-3 (Version None)
Quarter: 2010Q1

REPORT INFORMATION
  Report Type: 
  Country: None (occurrence: None)
  Receive Date: 20100202
  Receipt Date: 20100122
  Transmission Date: 20100710
  Serious: Yes (Hospitalization)
  Sender: FDA-Public Use
  Company Number: US-JNJFOC-20090906305

PATIENT
  Sex: Female
  Weight: 87.54 kg

DRUGS (5)
  1. REMICADE [Suspect]
     Indication: RHEUMATOID ARTHRITIS
     Route: 042
     Dates: start: 20060925, end: 20090101
  2. REMICADE [Suspect]
     Route: 042
     Dates: start: 20060925, end: 20090101
  3. REMICADE [Suspect]
     Route: 042
     Dates: start: 20060925, end: 20090101
  4. REMICADE [Suspect]
     Route: 042
     Dates: start: 20060925, end: 20090101
  5. REMICADE [Suspect]
     Route: 042
     Dates: start: 20060925, end: 20090101

REACTIONS (1)
  - PULMONARY TUBERCULOSIS [None]
